FAERS Safety Report 10786097 (Version 2)
Quarter: 2015Q3

REPORT INFORMATION
  Report Type: Spontaneous
  Country: FR (occurrence: FR)
  Receive Date: 20150211
  Receipt Date: 20150806
  Transmission Date: 20151125
  Serious: Yes (Hospitalization)
  Sender: FDA-Public Use
  Company Number: FR-SA-2015SA014620

PATIENT
  Age: 67 Year
  Sex: Female

DRUGS (12)
  1. ESOMEPRAZOLE [Concomitant]
     Active Substance: ESOMEPRAZOLE
     Dosage: STRENGTH: 20MG
  2. ALPRAZOLAM. [Concomitant]
     Active Substance: ALPRAZOLAM
     Dosage: STRENGTH: 0.5MG
  3. PLAVIX [Suspect]
     Active Substance: CLOPIDOGREL BISULFATE
     Indication: CEREBROVASCULAR ACCIDENT
     Route: 065
     Dates: start: 2005
  4. BIPROFENID [Suspect]
     Active Substance: KETOPROFEN
     Indication: PAIN
     Dosage: IF REQUIRED (1 DF, 1 IN 8 HOUR (S))?SCORED TABLET
     Route: 048
     Dates: start: 20141122
  5. COAPROVEL [Concomitant]
     Active Substance: HYDROCHLOROTHIAZIDE\IRBESARTAN
     Dosage: STERNGTH: 150/12.5MG
  6. LAMICTAL [Concomitant]
     Active Substance: LAMOTRIGINE
     Dosage: STRENGTH: 25MG
  7. FENOFIBRATE. [Concomitant]
     Active Substance: FENOFIBRATE
     Dosage: STRENGTH: 160MG
  8. GAVISCON [Concomitant]
     Active Substance: ALUMINUM HYDROXIDE\MAGNESIUM CARBONATE
  9. LAMICTAL [Concomitant]
     Active Substance: LAMOTRIGINE
     Dosage: STRENGTH: 50MG
  10. ACETAMINOPHEN AND CODEINE [Concomitant]
     Active Substance: ACETAMINOPHEN\CODEINE PHOSPHATE
     Indication: PAIN
     Dosage: 400 MG/20 MG
  11. CYMBALTA [Suspect]
     Active Substance: DULOXETINE HYDROCHLORIDE
     Route: 048
     Dates: start: 20141122
  12. ACTISKENAN [Concomitant]
     Active Substance: MORPHINE SULFATE
     Dosage: STRENGTH: 5MG
     Dates: start: 20141122

REACTIONS (2)
  - Diverticulitis [Recovered/Resolved]
  - Rectal haemorrhage [Recovered/Resolved]

NARRATIVE: CASE EVENT DATE: 20141130
